FAERS Safety Report 7720206-3 (Version None)
Quarter: 2011Q3

REPORT INFORMATION
  Report Type: 
  Country: None (occurrence: None)
  Receive Date: 20110825
  Receipt Date: 20110811
  Transmission Date: 20111222
  Serious: Yes (Hospitalization, Other)
  Sender: FDA-Public Use
  Company Number: JPI-P-013084

PATIENT
  Age: 49 Year
  Sex: Male
  Weight: 107.0489 kg

DRUGS (6)
  1. ACID PILLS [Concomitant]
  2. ARMODAFINIL [Concomitant]
  3. STOOL SOFTENER [Concomitant]
  4. XYREM [Suspect]
     Indication: NARCOLEPSY
     Dosage: (UNKNOWN, 2 IN 1 D), ORAL, UNKNOWN, TITRATING DOSE, ORAL, (4 GM FIRST DOSE/3 GM SECOND DOSE), ORAL
     Route: 048
     Dates: start: 20080923
  5. XYREM [Suspect]
     Indication: SLEEP APNOEA SYNDROME
     Dosage: (UNKNOWN, 2 IN 1 D), ORAL, UNKNOWN, TITRATING DOSE, ORAL, (4 GM FIRST DOSE/3 GM SECOND DOSE), ORAL
     Route: 048
     Dates: start: 20080923
  6. IBUPROFEN [Concomitant]

REACTIONS (3)
  - NON-HODGKIN'S LYMPHOMA [None]
  - BRONCHITIS [None]
  - PNEUMONIA [None]
